FAERS Safety Report 6955487-7 (Version None)
Quarter: 2010Q3

REPORT INFORMATION
  Report Type: 
  Country: None (occurrence: None)
  Receive Date: 20100830
  Receipt Date: 20100818
  Transmission Date: 20110219
  Serious: Yes (Death, Other)
  Sender: FDA-Public Use
  Company Number: JP-PFIZER INC-2010105073

PATIENT
  Age: 83 Year
  Sex: Male

DRUGS (5)
  1. NOVASTAN [Suspect]
     Dosage: UNK
     Route: 041
     Dates: start: 20100808, end: 20100811
  2. RADICUT [Suspect]
     Indication: THROMBOTIC CEREBRAL INFARCTION
     Dosage: 30 MG, 2X/DAY
     Route: 041
     Dates: start: 20100806
  3. ACTIVASE [Suspect]
     Indication: THROMBOTIC CEREBRAL INFARCTION
     Dosage: 40 ML, 1X/DAY
     Route: 042
     Dates: start: 20100806, end: 20100806
  4. PLETAL [Suspect]
     Dosage: UNK
     Route: 048
     Dates: start: 20100807
  5. ASPIRIN [Suspect]
     Dosage: UNK
     Route: 048
     Dates: start: 20100807

REACTIONS (1)
  - AORTIC ANEURYSM RUPTURE [None]
